FAERS Safety Report 5273811-0 (Version None)
Quarter: 2007Q1

REPORT INFORMATION
  Report Type: 
  Country: None (occurrence: None)
  Receive Date: 20070323
  Receipt Date: 20070312
  Transmission Date: 20070707
  Serious: Yes (Hospitalization)
  Sender: FDA-Public Use
  Company Number: PHHO2007JP03761

PATIENT
  Age: 76 Year
  Sex: Female
  Weight: 146 kg

DRUGS (5)
  1. LOCHOL [Suspect]
     Indication: HYPERCHOLESTEROLAEMIA
     Dosage: 40 MG, QD
     Route: 048
     Dates: start: 20010705
  2. LOCHOL [Suspect]
     Dosage: 20 MG, QD
     Route: 048
     Dates: end: 20060325
  3. NORVASC [Suspect]
  4. BLOPRESS [Suspect]
  5. ACINON [Concomitant]

REACTIONS (4)
  - BLOOD PRESSURE INCREASED [None]
  - DIZZINESS [None]
  - HEMIPARESIS [None]
  - THROMBOTIC STROKE [None]
